FAERS Safety Report 10577835 (Version 1)
Quarter: 2014Q4

REPORT INFORMATION
  Report Type: Spontaneous
  Country: GB (occurrence: GB)
  Receive Date: 20141111
  Receipt Date: 20141111
  Transmission Date: 20150529
  Serious: Yes (Disabling)
  Sender: FDA-Public Use
  Company Number: PHHY2014GB145422

PATIENT
  Age: 71 Year
  Sex: Male
  Weight: 85.1 kg

DRUGS (7)
  1. VENTOLIN [Concomitant]
     Active Substance: ALBUTEROL SULFATE
     Dates: start: 20140702, end: 20141009
  2. INDAPAMIDE. [Concomitant]
     Active Substance: INDAPAMIDE
     Dates: start: 20140707, end: 20141009
  3. TIOTROPIUM [Concomitant]
     Active Substance: TIOTROPIUM
     Dates: start: 20140707, end: 20141009
  4. DOXAZOSIN [Concomitant]
     Active Substance: DOXAZOSIN\DOXAZOSIN MESYLATE
     Dates: start: 20140707, end: 20141007
  5. CO-AMOXICLAV [Suspect]
     Active Substance: AMOXICILLIN\CLAVULANIC ACID
     Dates: start: 20141023
  6. RAMIPRIL. [Concomitant]
     Active Substance: RAMIPRIL
     Dates: start: 20140707, end: 20141007
  7. SIMVASTATIN. [Concomitant]
     Active Substance: SIMVASTATIN
     Dates: start: 20140707, end: 20141007

REACTIONS (2)
  - Malaise [Recovered/Resolved]
  - Lethargy [Unknown]

NARRATIVE: CASE EVENT DATE: 20141023
